FAERS Safety Report 5144131-X (Version None)
Quarter: 2006Q4

REPORT INFORMATION
  Report Type: 
  Country: None (occurrence: None)
  Receive Date: 20061106
  Receipt Date: 20060808
  Transmission Date: 20070319
  Serious: Yes (Other)
  Sender: FDA-Public Use
  Company Number: BE-AMGEN-UK186262

PATIENT
  Sex: Female
  Weight: 54 kg

DRUGS (11)
  1. ARANESP [Suspect]
     Indication: RENAL FAILURE CHRONIC
     Route: 042
     Dates: start: 20060101
  2. VENOFER [Concomitant]
     Route: 042
     Dates: start: 20060626, end: 20060717
  3. AMLODIPINE [Concomitant]
     Route: 048
     Dates: start: 20060622
  4. APROVEL [Concomitant]
     Route: 048
     Dates: start: 20060606
  5. CELLCEPT [Concomitant]
     Route: 048
     Dates: start: 20060101
  6. CETIRIZINE HCL [Concomitant]
     Route: 048
     Dates: start: 20060619
  7. CRESTOR [Concomitant]
     Route: 048
     Dates: start: 20060606
  8. MEDROL [Concomitant]
     Route: 048
     Dates: start: 20030901
  9. MICROGYNON [Concomitant]
     Route: 048
     Dates: start: 20060607
  10. OMEPRAZOLE [Concomitant]
     Route: 048
     Dates: start: 20060624
  11. DOXYCYCLINE [Concomitant]
     Route: 048
     Dates: start: 20060706, end: 20060714

REACTIONS (5)
  - FATIGUE [None]
  - HAEMODIALYSIS [None]
  - HAEMOGLOBIN DECREASED [None]
  - PANCYTOPENIA [None]
  - SYSTEMIC LUPUS ERYTHEMATOSUS [None]
